FAERS Safety Report 16510898 (Version 1)
Quarter: 2019Q3

REPORT INFORMATION
  Report Type: Spontaneous
  Country: US (occurrence: US)
  Receive Date: 20190702
  Receipt Date: 20190702
  Transmission Date: 20191004
  Serious: No
  Sender: FDA-Public Use
  Company Number: US-ACCORD-068695

PATIENT
  Age: 52 Year
  Sex: Male

DRUGS (1)
  1. ALLOPURINOL ACCORD [Suspect]
     Active Substance: ALLOPURINOL
     Indication: GOUT
     Dosage: LOT NO: W17891 FOR 100 MG (START DATE: 23-MAY-2018), W19061 FOR 300 MG (START DATE: 01-MAY-2018)
     Route: 048
     Dates: start: 20180501

REACTIONS (1)
  - Dizziness [Unknown]
